FAERS Safety Report 8528419-8 (Version None)
Quarter: 2012Q3

REPORT INFORMATION
  Report Type: 
  Country: None (occurrence: None)
  Receive Date: 20120722
  Receipt Date: 20120711
  Transmission Date: 20120928
  Serious: No
  Sender: FDA-Public Use
  Company Number: US-009507513-1207USA003007

PATIENT

DRUGS (1)
  1. REMERON [Suspect]
     Indication: DEPRESSION
     Dosage: UNK
     Route: 048
     Dates: start: 20120618, end: 20120708

REACTIONS (4)
  - POOR QUALITY SLEEP [None]
  - MALAISE [None]
  - BURNING SENSATION [None]
  - MUSCLE RIGIDITY [None]
